FAERS Safety Report 7112498-9 (Version None)
Quarter: 2010Q4

REPORT INFORMATION
  Report Type: 
  Country: None (occurrence: None)
  Receive Date: 20101119
  Receipt Date: 20101012
  Transmission Date: 20110411
  Serious: Yes (Hospitalization, Other)
  Sender: FDA-Public Use
  Company Number: US-BAYER-201026860NA

PATIENT
  Age: 27 Year
  Sex: Female
  Weight: 84 kg

DRUGS (22)
  1. YAZ [Suspect]
     Indication: CONTRACEPTION
     Route: 048
     Dates: start: 20051201
  2. YASMIN [Suspect]
     Indication: CONTRACEPTION
     Route: 048
     Dates: start: 20030101, end: 20050101
  3. TYLENOL (CAPLET) [Concomitant]
  4. SYNTHROID [Concomitant]
     Indication: THYROID DISORDER
  5. IBUPROFEN [Concomitant]
     Indication: PAIN
  6. LEVOXYL [Concomitant]
     Indication: THYROID DISORDER
  7. DURAFEN [Concomitant]
     Indication: SINUS CONGESTION
  8. EPIDURAL INJECTION [Concomitant]
     Indication: BACK PAIN
     Dates: start: 20050901
  9. OXYCONTIN [Concomitant]
  10. TOPAMAX [Concomitant]
     Dosage: 2 TABS DAILY
  11. ZYRTEC-D 12 HOUR [Concomitant]
     Dosage: 1 TAB DAILY
  12. PHENTERMINE [Concomitant]
  13. MOBIC [Concomitant]
  14. AMITRIPTYLINE HCL [Concomitant]
  15. ALLEGRA D 24 HOUR [Concomitant]
  16. VISTARIL [Concomitant]
     Indication: HEADACHE
  17. STADOL [Concomitant]
     Indication: HEADACHE
     Route: 045
  18. LORTAB [Concomitant]
     Dosage: 10 MG Q4H
  19. LEVAQUIN [Concomitant]
  20. DURAPHEN FORTE [Concomitant]
     Indication: PULMONARY CONGESTION
     Dosage: ONE TAB Q12H
  21. FOSAMAX [Concomitant]
     Indication: OSTEOPENIA
  22. ADVIL [Concomitant]

REACTIONS (4)
  - DEEP VEIN THROMBOSIS [None]
  - DEPRESSION [None]
  - PAIN IN EXTREMITY [None]
  - THROMBOSIS [None]
